FAERS Safety Report 9387279 (Version 1)
Quarter: 2013Q3

REPORT INFORMATION
  Report Type: Spontaneous
  Country: US (occurrence: US)
  Receive Date: 20130708
  Receipt Date: 20130708
  Transmission Date: 20140515
  Serious: Yes (Disabling, Other)
  Sender: FDA-Public Use
  Company Number: US-ELI_LILLY_AND_COMPANY-US201306008538

PATIENT
  Sex: Female

DRUGS (1)
  1. STRATTERA [Suspect]
     Dosage: UNK, UNKNOWN

REACTIONS (7)
  - Laceration [Unknown]
  - Road traffic accident [Unknown]
  - Multiple injuries [Unknown]
  - Head injury [Unknown]
  - Convulsion [Unknown]
  - Apathy [Unknown]
  - General physical health deterioration [Unknown]
